FAERS Safety Report 4806323-6 (Version None)
Quarter: 2005Q4

REPORT INFORMATION
  Report Type: 
  Country: None (occurrence: None)
  Receive Date: 20051021
  Receipt Date: 20050509
  Transmission Date: 20060501
  Serious: Yes (Death, Hospitalization)
  Sender: FDA-Public Use
  Company Number: US-ROCHE-404285

PATIENT
  Age: 56 Year
  Sex: Female

DRUGS (7)
  1. CAPECITABINE [Suspect]
     Dosage: ADMINISTERED DAILY ON 14 OUT OF 21 DAYS
     Route: 048
     Dates: start: 20050322, end: 20050404
  2. CETUXIMAB [Suspect]
     Dosage: NO FREQUENCY REPORTED
     Route: 042
     Dates: start: 20050322, end: 20050322
  3. IRINOTECAN HCL [Suspect]
     Dosage: ADMINISTERED ON DAY 1 OF 21 DAY CYCLE
     Route: 042
     Dates: start: 20050322, end: 20050322
  4. MS CONTIN [Suspect]
     Route: 065
  5. ZOFRAN [Concomitant]
  6. OXYCONTIN [Concomitant]
  7. FRAGMIN [Concomitant]
     Route: 058

REACTIONS (8)
  - ANAEMIA [None]
  - DEHYDRATION [None]
  - HYPOKALAEMIA [None]
  - MALIGNANT NEOPLASM PROGRESSION [None]
  - NEOPLASM MALIGNANT [None]
  - ORAL INTAKE REDUCED [None]
  - RENAL FAILURE ACUTE [None]
  - SOMNOLENCE [None]
